FAERS Safety Report 6020584-X (Version None)
Quarter: 2008Q4

REPORT INFORMATION
  Report Type: 
  Country: None (occurrence: None)
  Receive Date: 20081227
  Receipt Date: 20081217
  Transmission Date: 20090506
  Serious: Yes (Disabling)
  Sender: FDA-Public Use
  Company Number: US-JNJFOC-20081205737

PATIENT
  Age: 40 Year
  Sex: Male

DRUGS (3)
  1. LEVAQUIN [Suspect]
     Indication: BRONCHITIS
     Route: 048
  2. LEVAQUIN [Suspect]
     Indication: SINUSITIS
     Route: 048
  3. STEROIDS [Concomitant]
     Indication: LARYNGITIS
     Route: 065

REACTIONS (6)
  - ACTIVITIES OF DAILY LIVING IMPAIRED [None]
  - ARTHROPATHY [None]
  - MYALGIA [None]
  - ROTATOR CUFF SYNDROME [None]
  - SENSORY DISTURBANCE [None]
  - TENDON PAIN [None]
